FAERS Safety Report 16395735 (Version 2)
Quarter: 2019Q2

REPORT INFORMATION
  Report Type: Spontaneous
  Country: NZ (occurrence: NZ)
  Receive Date: 20190605
  Receipt Date: 20190611
  Transmission Date: 20190711
  Serious: Yes (Other)
  Sender: FDA-Public Use
  Company Number: NZ-BAYER-2019-109397

PATIENT
  Age: 51 Year
  Sex: Female

DRUGS (2)
  1. MIRENA [Suspect]
     Active Substance: LEVONORGESTREL
     Indication: MENORRHAGIA
     Dosage: 20 MCG/24HR, CONT
     Route: 015
     Dates: start: 2016, end: 201810
  2. MIRENA [Suspect]
     Active Substance: LEVONORGESTREL
     Indication: MENORRHAGIA
     Dosage: 20 MCG/24HR, CONT
     Route: 015

REACTIONS (12)
  - Sleep disorder [None]
  - Middle insomnia [None]
  - Suicidal ideation [Not Recovered/Not Resolved]
  - Feeling abnormal [Not Recovered/Not Resolved]
  - Genital haemorrhage [Recovered/Resolved]
  - Hot flush [None]
  - Acne [None]
  - Device expulsion [Recovered/Resolved]
  - Depressed mood [Not Recovered/Not Resolved]
  - Genital haemorrhage [None]
  - Nausea [Recovered/Resolved]
  - Palpitations [None]

NARRATIVE: CASE EVENT DATE: 2016
